FAERS Safety Report 6402799-1 (Version None)
Quarter: 2009Q4

REPORT INFORMATION
  Report Type: 
  Country: None (occurrence: None)
  Receive Date: 20091016
  Receipt Date: 20070925
  Transmission Date: 20100525
  Serious: Yes (Disabling)
  Sender: FDA-Public Use
  Company Number: US-ASTRAZENECA-2006UW10727

PATIENT
  Sex: Male
  Weight: 115.2 kg

DRUGS (27)
  1. SEROQUEL [Suspect]
     Indication: ANXIETY
     Route: 048
     Dates: start: 20030819
  2. SEROQUEL [Suspect]
     Indication: POOR QUALITY SLEEP
     Route: 048
     Dates: start: 20030819
  3. SEROQUEL [Suspect]
     Indication: MOOD SWINGS
     Route: 048
     Dates: start: 20030819
  4. SEROQUEL [Suspect]
     Indication: NERVE STIMULATION TEST
     Route: 048
     Dates: start: 20030819
  5. SEROQUEL [Suspect]
     Indication: INSOMNIA
     Route: 048
     Dates: start: 20030819
  6. SEROQUEL [Suspect]
     Indication: AGITATION
     Route: 048
     Dates: start: 20030819
  7. SEROQUEL [Suspect]
     Route: 048
     Dates: start: 20031024
  8. SEROQUEL [Suspect]
     Route: 048
     Dates: start: 20031024
  9. SEROQUEL [Suspect]
     Route: 048
     Dates: start: 20031024
  10. SEROQUEL [Suspect]
     Route: 048
     Dates: start: 20031024
  11. SEROQUEL [Suspect]
     Route: 048
     Dates: start: 20031024
  12. SEROQUEL [Suspect]
     Route: 048
     Dates: start: 20031024
  13. SEROQUEL [Suspect]
     Route: 048
     Dates: start: 20050714
  14. SEROQUEL [Suspect]
     Route: 048
     Dates: start: 20050714
  15. SEROQUEL [Suspect]
     Route: 048
     Dates: start: 20050714
  16. SEROQUEL [Suspect]
     Route: 048
     Dates: start: 20050714
  17. SEROQUEL [Suspect]
     Route: 048
     Dates: start: 20050714
  18. SEROQUEL [Suspect]
     Route: 048
     Dates: start: 20050714
  19. TRAZODONE [Concomitant]
     Dosage: 50 - 100 MG AT NIGHT
     Route: 048
     Dates: start: 20051026
  20. DEPAKOTE [Concomitant]
     Route: 048
     Dates: start: 20051006
  21. KLONOPIN [Concomitant]
     Route: 048
     Dates: start: 20051006
  22. RISPERDAL [Concomitant]
     Route: 048
     Dates: start: 20051006
  23. BUSPAR [Concomitant]
     Route: 048
     Dates: start: 20060607
  24. ZOLOFT [Concomitant]
     Route: 048
     Dates: start: 20061222
  25. GABITRIL [Concomitant]
     Route: 048
     Dates: start: 20031024
  26. NOVOLOG [Concomitant]
     Dosage: 60 UNITS DAILY
     Dates: start: 20040928
  27. PROTONIX [Concomitant]
     Indication: GASTROOESOPHAGEAL REFLUX DISEASE
     Dates: start: 20040928

REACTIONS (1)
  - ILL-DEFINED DISORDER [None]
